FAERS Safety Report 10190287 (Version 1)
Quarter: 2014Q2

REPORT INFORMATION
  Report Type: Report from Study
  Country: US (occurrence: US)
  Receive Date: 20140522
  Receipt Date: 20140522
  Transmission Date: 20141212
  Serious: Yes (Death, Hospitalization, Other)
  Sender: FDA-Public Use
  Company Number: US-MPIJNJ-2014MPI001494

PATIENT
  Age: 70 Year
  Sex: Male
  Weight: 124.7 kg

DRUGS (3)
  1. VELCADE [Suspect]
     Indication: ACUTE MYELOID LEUKAEMIA
     Dosage: 1.3 MG/M2, UNK (DAYS 1, 4, 8 AND 11) DURING INDUCTION THERAPY
     Route: 058
     Dates: start: 20130110, end: 20130110
  2. VELCADE [Suspect]
     Dosage: 1.3 MG/M2, UNK (DAYS 1, 4, 8 AND 11) DURING INDUCTION THERAPY
     Route: 058
     Dates: start: 20130115, end: 20130117
  3. DECITABINE [Suspect]
     Indication: ACUTE MYELOID LEUKAEMIA
     Dosage: 20 MG/M2, UNK (ON DAYS 2-11 DURING INDUCTION PHASE)
     Route: 042

REACTIONS (8)
  - Cardiac arrest [Fatal]
  - Respiratory failure [Unknown]
  - Sinus tachycardia [Unknown]
  - Pulmonary oedema [Unknown]
  - Cellulitis [Unknown]
  - Pyrexia [Unknown]
  - Blood creatinine increased [Unknown]
  - Gastrooesophageal reflux disease [Unknown]
